FAERS Safety Report 21610481 (Version 2)
Quarter: 2022Q4

REPORT INFORMATION
  Report Type: Report from Study
  Country: CN (occurrence: CN)
  Receive Date: 20221117
  Receipt Date: 20221201
  Transmission Date: 20230113
  Serious: Yes (Hospitalization)
  Sender: FDA-Public Use
  Company Number: CN-JNJFOC-20221114431

PATIENT
  Age: 54 Year
  Sex: Female
  Weight: 37.1 kg

DRUGS (6)
  1. TECLISTAMAB [Suspect]
     Active Substance: TECLISTAMAB
     Indication: Plasma cell myeloma
     Route: 058
     Dates: start: 20221021, end: 20221104
  2. DARATUMUMAB [Suspect]
     Active Substance: DARATUMUMAB
     Indication: Plasma cell myeloma
     Route: 058
     Dates: start: 20221014, end: 20221104
  3. VALACYCLOVIR HYDROCHLORIDE [Concomitant]
     Active Substance: VALACYCLOVIR HYDROCHLORIDE
     Indication: Infection prophylaxis
     Route: 048
     Dates: start: 20221017
  4. GRANULOCYTE COLONY-STIMULATING FACTOR NOS [Concomitant]
     Active Substance: GRANULOCYTE COLONY-STIMULATING FACTOR NOS
     Indication: Neutrophil count decreased
     Route: 058
     Dates: start: 20221029, end: 20221029
  5. COMPOUND SODIUM CHLORIDE [HYETELLOSE;POTASSIUM CHLORIDE;SODIUM CHLORID [Concomitant]
     Indication: Hyponatraemia
     Route: 042
     Dates: start: 20221121, end: 20221121
  6. COMPOUND SODIUM CHLORIDE [HYETELLOSE;POTASSIUM CHLORIDE;SODIUM CHLORID [Concomitant]
     Indication: Blood chloride decreased

REACTIONS (3)
  - Cytokine release syndrome [Recovered/Resolved]
  - Infection [Recovered/Resolved]
  - Pneumonia [Not Recovered/Not Resolved]

NARRATIVE: CASE EVENT DATE: 20221107
